FAERS Safety Report 17868123 (Version 2)
Quarter: 2020Q2

REPORT INFORMATION
  Report Type: Spontaneous
  Country: US (occurrence: US)
  Receive Date: 20200605
  Receipt Date: 20200608
  Transmission Date: 20200714
  Serious: Yes (Hospitalization, Other)
  Sender: FDA-Public Use
  Company Number: US-SHIRE-US202017729

PATIENT
  Age: 17 Year
  Sex: Male
  Weight: 53.8 kg

DRUGS (3)
  1. GAMMAGARD S/D [Suspect]
     Active Substance: HUMAN IMMUNOGLOBULIN G
     Dosage: 10 GRAM
     Route: 065
  2. GAMMAGARD S/D [Suspect]
     Active Substance: HUMAN IMMUNOGLOBULIN G
     Indication: OPTIC NEURITIS
     Dosage: 22 GRAM
     Route: 065
  3. GAMMAGARD S/D [Suspect]
     Active Substance: HUMAN IMMUNOGLOBULIN G
     Dosage: 5 GRAM
     Route: 065

REACTIONS (10)
  - Nystagmus [Unknown]
  - Tachypnoea [Unknown]
  - Intentional product use issue [Unknown]
  - Paraesthesia [Unknown]
  - Hypoxia [Unknown]
  - Respiratory failure [Unknown]
  - Adverse drug reaction [Unknown]
  - Multiple organ dysfunction syndrome [Unknown]
  - Tachycardia [Unknown]
  - Septic shock [Unknown]
